FAERS Safety Report 11128187 (Version 3)
Quarter: 2015Q2

REPORT INFORMATION
  Report Type: Spontaneous
  Country: US (occurrence: US)
  Receive Date: 20150521
  Receipt Date: 20150603
  Transmission Date: 20150821
  Serious: Yes (Hospitalization)
  Sender: FDA-Public Use
  Company Number: US-UCBSA-2015015654

PATIENT
  Age: 79 Year
  Sex: Female
  Weight: 45.35 kg

DRUGS (6)
  1. KEPPRA XR [Suspect]
     Active Substance: LEVETIRACETAM
     Dosage: 1500 MG PER DAY
     Route: 048
     Dates: end: 201505
  2. KEPPRA [Suspect]
     Active Substance: LEVETIRACETAM
     Dosage: UNK
     Route: 048
     Dates: start: 2015
  3. KEPPRA XR [Suspect]
     Active Substance: LEVETIRACETAM
     Dosage: UNK MG
     Route: 048
     Dates: start: 201505, end: 20150515
  4. KEPPRA [Suspect]
     Active Substance: LEVETIRACETAM
     Indication: PRODUCT USED FOR UNKNOWN INDICATION
     Dosage: UNK
     Route: 048
     Dates: start: 20150515, end: 2015
  5. KEPPRA XR [Suspect]
     Active Substance: LEVETIRACETAM
     Indication: SEIZURE
     Dosage: 500 MG, 2X/DAY (BID)
     Route: 048
  6. KEPPRA [Suspect]
     Active Substance: LEVETIRACETAM
     Dosage: 1000 MG, 2X/DAY (BID)
     Route: 048
     Dates: start: 2015, end: 2015

REACTIONS (5)
  - Hospitalisation [Unknown]
  - Haemoglobin decreased [Unknown]
  - Drug level increased [Recovering/Resolving]
  - Ammonia increased [Unknown]
  - Inappropriate schedule of drug administration [Unknown]

NARRATIVE: CASE EVENT DATE: 20150417
